FAERS Safety Report 8892679 (Version 1)
Quarter: 2012Q4

REPORT INFORMATION
  Report Type: Spontaneous
  Country: US (occurrence: None)
  Receive Date: 20121105
  Receipt Date: 20121105
  Transmission Date: 20130627
  Serious: Yes (Other)
  Sender: FDA-Public Use
  Company Number: None

PATIENT

DRUGS (1)
  1. MORPHINE SULFATE [Suspect]
     Dosage: Lot # 12290120C, Exp. Date 01/01/2013

REACTIONS (1)
  - Product label issue [None]
